FAERS Safety Report 8048964-1 (Version None)
Quarter: 2012Q1

REPORT INFORMATION
  Report Type: 
  Country: None (occurrence: None)
  Receive Date: 20120110
  Receipt Date: 20120105
  Transmission Date: 20120608
  Serious: Yes (Hospitalization)
  Sender: FDA-Public Use
  Company Number: 1000026586

PATIENT
  Age: 63 Year
  Sex: Female

DRUGS (2)
  1. MIRTAZAPINE [Suspect]
     Indication: CONVERSION DISORDER
     Dosage: 30 MG (30 MG, 1 IN 1 D), ORAL
     Route: 048
  2. ESCITALOPRAM OXALATE [Suspect]
     Indication: CONVERSION DISORDER
     Dosage: 10 MG (10 MG, 1 IN 1 D), ORAL
     Route: 048

REACTIONS (12)
  - SENSORY LOSS [None]
  - SPUR CELL ANAEMIA [None]
  - CEREBELLAR ATROPHY [None]
  - THINKING ABNORMAL [None]
  - SLOW SPEECH [None]
  - HYPOAESTHESIA [None]
  - GAIT DISTURBANCE [None]
  - CEREBRAL ISCHAEMIA [None]
  - AFFECTIVE DISORDER [None]
  - TORTICOLLIS [None]
  - HYPOREFLEXIA [None]
  - DYSKINESIA [None]
